FAERS Safety Report 13956574 (Version 1)
Quarter: 2017Q3

REPORT INFORMATION
  Report Type: Report from Study
  Country: None (occurrence: US)
  Receive Date: 20170912
  Receipt Date: 20170912
  Transmission Date: 20171128
  Serious: Yes (Hospitalization, Other)
  Sender: FDA-Public Use
  Company Number: US-ABBVIE-17K-163-2076534-00

PATIENT
  Age: 22 Year
  Sex: Male
  Weight: 52.21 kg

DRUGS (2)
  1. HUMIRA [Suspect]
     Active Substance: ADALIMUMAB
     Indication: COLITIS ULCERATIVE
     Dosage: LOADING DOSE
     Route: 058
     Dates: start: 20170816, end: 20170816
  2. REMICADE [Suspect]
     Active Substance: INFLIXIMAB
     Indication: COLITIS ULCERATIVE
     Route: 065
     Dates: start: 201708

REACTIONS (23)
  - Adverse reaction [Recovering/Resolving]
  - Weight decreased [Not Recovered/Not Resolved]
  - Hypophagia [Unknown]
  - Diarrhoea [Recovering/Resolving]
  - Hepatic enzyme increased [Unknown]
  - Drug ineffective [Not Recovered/Not Resolved]
  - Liver disorder [Unknown]
  - Tremor [Unknown]
  - Chills [Not Recovered/Not Resolved]
  - Fatigue [Not Recovered/Not Resolved]
  - Hyperhidrosis [Unknown]
  - Gastrointestinal oedema [Recovering/Resolving]
  - Intra-abdominal pressure increased [Recovering/Resolving]
  - Pyrexia [Recovering/Resolving]
  - Serum sickness [Unknown]
  - Haematochezia [Recovering/Resolving]
  - Haematochezia [Unknown]
  - Dehydration [Recovered/Resolved]
  - Influenza like illness [Unknown]
  - Colitis ulcerative [Recovering/Resolving]
  - Colitis [Not Recovered/Not Resolved]
  - Freezing phenomenon [Unknown]
  - Abdominal pain [Recovering/Resolving]

NARRATIVE: CASE EVENT DATE: 2017
